FAERS Safety Report 5749524-5 (Version None)
Quarter: 2008Q2

REPORT INFORMATION
  Report Type: 
  Country: None (occurrence: None)
  Receive Date: 20080527
  Receipt Date: 20080521
  Transmission Date: 20081010
  Serious: Yes (Other)
  Sender: FDA-Public Use
  Company Number: B0521907A

PATIENT
  Age: 72 Year
  Sex: Male

DRUGS (1)
  1. ZINACEF [Suspect]
     Indication: ACUTE SINUSITIS
     Route: 042
     Dates: start: 20080402, end: 20080402

REACTIONS (5)
  - BLOOD PRESSURE DECREASED [None]
  - HYPERHIDROSIS [None]
  - PULSE ABNORMAL [None]
  - SYNCOPE [None]
  - TACHYCARDIA [None]
